FAERS Safety Report 17289929 (Version 1)
Quarter: 2020Q1

REPORT INFORMATION
  Report Type: Spontaneous
  Country: RO (occurrence: RO)
  Receive Date: 20200120
  Receipt Date: 20200120
  Transmission Date: 20200409
  Serious: Yes (Other)
  Sender: FDA-Public Use
  Company Number: RO-MYLANLABS-2020M1004781

PATIENT
  Age: 56 Year
  Sex: Male

DRUGS (8)
  1. AVASTIN [Suspect]
     Active Substance: BEVACIZUMAB
     Indication: COLORECTAL CANCER METASTATIC
     Dosage: 5 MILLIGRAM/KILOGRAM
     Route: 042
     Dates: start: 20171107, end: 20180416
  2. FOLINIC ACID [Concomitant]
     Active Substance: LEUCOVORIN
     Indication: COLORECTAL CANCER METASTATIC
     Dosage: YES
     Route: 065
     Dates: start: 20181001
  3. IRINOTECAN [Concomitant]
     Active Substance: IRINOTECAN
     Indication: COLORECTAL CANCER METASTATIC
     Dosage: YES
     Route: 065
     Dates: start: 20181001
  4. 5 FLUOROURACIL                     /00098802/ [Concomitant]
     Dosage: YES
     Route: 065
     Dates: start: 20181001
  5. AVASTIN [Suspect]
     Active Substance: BEVACIZUMAB
     Dosage: 5 MILLIGRAM/KILOGRAM
     Route: 042
     Dates: start: 20181001
  6. OXALIPLATIN. [Suspect]
     Active Substance: OXALIPLATIN
     Indication: COLORECTAL CANCER METASTATIC
     Dosage: 85 MILLIGRAM/SQ. METER /NO
     Route: 065
     Dates: start: 20171107, end: 20180416
  7. FOLINIC ACID [Concomitant]
     Active Substance: LEUCOVORIN
     Dosage: NO
     Route: 065
     Dates: start: 20171107, end: 20180416
  8. 5 FLUOROURACIL                     /00098802/ [Concomitant]
     Indication: COLORECTAL CANCER METASTATIC
     Dosage: NO
     Route: 065
     Dates: start: 20171107, end: 20180416

REACTIONS (6)
  - Proteinuria [Unknown]
  - Nausea [Unknown]
  - Paraesthesia [Unknown]
  - Epistaxis [Unknown]
  - Haemorrhage [Unknown]
  - Peripheral sensory neuropathy [Unknown]
